FAERS Safety Report 5400094-0 (Version None)
Quarter: 2007Q3

REPORT INFORMATION
  Report Type: 
  Country: None (occurrence: None)
  Receive Date: 20070726
  Receipt Date: 20070726
  Transmission Date: 20080115
  Serious: No
  Sender: FDA-Public Use
  Company Number: None

PATIENT
  Sex: Male
  Weight: 86.77 kg

DRUGS (7)
  1. ZOMETA [Suspect]
     Indication: BLOOD CALCIUM INCREASED
  2. ZOMETA [Suspect]
     Indication: NEOPLASM MALIGNANT
  3. FILGRASTIM SOLUTION [Concomitant]
  4. THALIDOMIDE [Concomitant]
  5. HEPARIN [Concomitant]
  6. CYANOCOBALAMIN [Concomitant]
  7. SODIUM CHLORIDE [Concomitant]

REACTIONS (1)
  - BLOOD CALCIUM DECREASED [None]
